FAERS Safety Report 13747782 (Version 3)
Quarter: 2017Q4

REPORT INFORMATION
  Report Type: Report from Study
  Country: CA (occurrence: CA)
  Receive Date: 20170713
  Receipt Date: 20171219
  Transmission Date: 20180320
  Serious: Yes (Other)
  Sender: FDA-Public Use
  Company Number: CA-ROCHE-1691145

PATIENT
  Age: 54 Year
  Sex: Female

DRUGS (5)
  1. METHOTREXATE. [Concomitant]
     Active Substance: METHOTREXATE
  2. RITUXAN [Suspect]
     Active Substance: RITUXIMAB
     Indication: RHEUMATOID ARTHRITIS
     Dosage: 500 MGX2?09/JUN/2014
     Route: 042
     Dates: start: 20140526
  3. CELEBREX [Concomitant]
     Active Substance: CELECOXIB
  4. FOLIC ACID. [Concomitant]
     Active Substance: FOLIC ACID
  5. DIFLUCAN [Concomitant]
     Active Substance: FLUCONAZOLE

REACTIONS (9)
  - Rhinorrhoea [Not Recovered/Not Resolved]
  - Nausea [Not Recovered/Not Resolved]
  - Abdominal pain [Not Recovered/Not Resolved]
  - Hypotension [Unknown]
  - Heart rate decreased [Unknown]
  - Chills [Not Recovered/Not Resolved]
  - Flatulence [Not Recovered/Not Resolved]
  - Oropharyngeal pain [Not Recovered/Not Resolved]
  - Transient ischaemic attack [Recovered/Resolved]

NARRATIVE: CASE EVENT DATE: 20160106
